FAERS Safety Report 8331131-1 (Version None)
Quarter: 2012Q2

REPORT INFORMATION
  Report Type: 
  Country: None (occurrence: None)
  Receive Date: 20120502
  Receipt Date: 20120411
  Transmission Date: 20120825
  Serious: No
  Sender: FDA-Public Use
  Company Number: US-AMGEN-USASP2012023062

PATIENT
  Age: 11 Year
  Sex: Female

DRUGS (2)
  1. ENBREL [Suspect]
     Indication: RHEUMATOID ARTHRITIS
     Dosage: 40 MG, QWK
     Dates: start: 20120216
  2. ENBREL [Suspect]
     Indication: JUVENILE ARTHRITIS

REACTIONS (5)
  - PYREXIA [None]
  - COUGH [None]
  - DECREASED APPETITE [None]
  - BEDRIDDEN [None]
  - OROPHARYNGEAL PAIN [None]
